FAERS Safety Report 16931797 (Version 3)
Quarter: 2020Q1

REPORT INFORMATION
  Report Type: Spontaneous
  Country: CZ (occurrence: CZ)
  Receive Date: 20191017
  Receipt Date: 20200227
  Transmission Date: 20200409
  Serious: Yes (Other)
  Sender: FDA-Public Use
  Company Number: CZ-BAXTER-2019BAX020474

PATIENT
  Age: 54 Year
  Sex: Female

DRUGS (6)
  1. CARBOPLATIN. [Suspect]
     Active Substance: CARBOPLATIN
     Indication: ADRENAL GLAND CANCER
     Dosage: CARBOPLATIN AUC5, 6 CYCLES
     Route: 042
     Dates: start: 201408, end: 2014
  2. DOXIL [Suspect]
     Active Substance: DOXORUBICIN HYDROCHLORIDE
     Indication: OVARIAN CANCER RECURRENT
  3. PACLITAXEL. [Suspect]
     Active Substance: PACLITAXEL
     Dosage: Q3WK, 6 CYCLES
     Route: 042
     Dates: start: 2012, end: 201210
  4. DOXIL [Suspect]
     Active Substance: DOXORUBICIN HYDROCHLORIDE
     Indication: ADRENAL GLAND CANCER
     Dosage: 6 CYCLES PEGYLATED LIPOSOMAL
     Route: 042
     Dates: start: 201408, end: 2015
  5. CARBOPLATIN. [Suspect]
     Active Substance: CARBOPLATIN
     Indication: OVARIAN CANCER RECURRENT
  6. PACLITAXEL. [Suspect]
     Active Substance: PACLITAXEL
     Indication: OVARIAN CANCER
     Route: 065
     Dates: end: 200808

REACTIONS (4)
  - Palmar-plantar erythrodysaesthesia syndrome [Unknown]
  - Metastases to peritoneum [Recovered/Resolved]
  - Neuropathy peripheral [Not Recovered/Not Resolved]
  - Seborrhoea [Recovered/Resolved]
